FAERS Safety Report 11088965 (Version 1)
Quarter: 2015Q2

REPORT INFORMATION
  Report Type: Spontaneous
  Country: GB (occurrence: GB)
  Receive Date: 20150504
  Receipt Date: 20150504
  Transmission Date: 20150821
  Serious: Yes (Other)
  Sender: FDA-Public Use
  Company Number: GB-AMGEN-GBRSP2015035797

PATIENT
  Age: 33 Year
  Sex: Female

DRUGS (1)
  1. ENBREL [Suspect]
     Active Substance: ETANERCEPT
     Indication: ANKYLOSING SPONDYLITIS
     Dosage: 50 MG, WEEKLY
     Route: 065
     Dates: start: 20150212

REACTIONS (7)
  - Arthralgia [Unknown]
  - Fatigue [Unknown]
  - Productive cough [Unknown]
  - Drug ineffective [Unknown]
  - Joint stiffness [Unknown]
  - Lower respiratory tract infection [Recovered/Resolved]
  - Visual impairment [Unknown]
